FAERS Safety Report 9161719 (Version 4)
Quarter: 2013Q3

REPORT INFORMATION
  Report Type: Spontaneous
  Country: US (occurrence: US)
  Receive Date: 20130314
  Receipt Date: 20130812
  Transmission Date: 20140515
  Serious: No
  Sender: FDA-Public Use
  Company Number: US-009507513-1303USA006024

PATIENT
  Age: 55 Year
  Sex: Male
  Weight: 86.17 kg

DRUGS (8)
  1. PEGINTRON [Suspect]
     Dosage: 180 MICROGRAM (0.75ML), QW FOR 4 WEEKS, 120 MCG/0.5 ML VIAL
     Route: 058
     Dates: start: 2013
  2. PEGINTRON [Suspect]
     Dosage: 180 MICROGRAM, QW FOR 4 WEEKS, 120 MCG/0.5 ML VIAL
     Route: 058
     Dates: start: 20130227
  3. RIBASPHERE [Suspect]
     Dosage: 200 MG, UNK
     Route: 048
  4. INCIVEK [Suspect]
     Dosage: 375 MG, UNK
     Route: 048
  5. ZETIA [Concomitant]
     Dosage: 10 MG, UNK
     Route: 048
  6. WELCHOL [Concomitant]
     Dosage: 625 MG, UNK
     Route: 048
  7. EXFORGE [Concomitant]
     Dosage: 10-160 MG
     Route: 048
  8. ASPIRIN [Concomitant]
     Dosage: 81 MG, UNK
     Route: 048

REACTIONS (15)
  - Dry eye [Unknown]
  - Crepitations [Unknown]
  - Haemorrhoids [Unknown]
  - Thirst [Unknown]
  - Influenza like illness [Unknown]
  - Fatigue [Unknown]
  - Irritability [Unknown]
  - Influenza like illness [Unknown]
  - Tremor [Recovered/Resolved]
  - Weight decreased [Unknown]
  - Decreased appetite [Unknown]
  - Asthenia [Unknown]
  - Fatigue [Unknown]
  - Irritability [Unknown]
  - Chills [Recovered/Resolved]
